FAERS Safety Report 12744629 (Version 1)
Quarter: 2016Q3

REPORT INFORMATION
  Report Type: Report from Study
  Country: US (occurrence: US)
  Receive Date: 20160915
  Receipt Date: 20160915
  Transmission Date: 20161109
  Serious: Yes (Other)
  Sender: FDA-Public Use
  Company Number: US-ROCHE-1827339

PATIENT
  Age: 21 Year
  Sex: Male
  Weight: 54.9 kg

DRUGS (4)
  1. BEVACIZUMAB [Suspect]
     Active Substance: BEVACIZUMAB
     Indication: MEDULLOBLASTOMA
     Dosage: COUSE 1
     Route: 042
     Dates: start: 20141117
  2. BEVACIZUMAB [Suspect]
     Active Substance: BEVACIZUMAB
     Dosage: COURSE 3
     Route: 042
     Dates: start: 20150323
  3. BEVACIZUMAB [Suspect]
     Active Substance: BEVACIZUMAB
     Dosage: COURSE:4
     Route: 042
     Dates: start: 20150518
  4. BEVACIZUMAB [Suspect]
     Active Substance: BEVACIZUMAB
     Dosage: COURSE 2
     Route: 042
     Dates: start: 20150119

REACTIONS (18)
  - Anaemia [Unknown]
  - Neutrophil count decreased [Unknown]
  - Sepsis [Unknown]
  - Urinary tract infection [Unknown]
  - Abdominal pain [Unknown]
  - Enterocolitis infectious [Unknown]
  - Hypophosphataemia [Unknown]
  - White blood cell count decreased [Unknown]
  - Encephalopathy [Unknown]
  - Dehydration [Unknown]
  - Hypotension [Unknown]
  - Platelet count decreased [Unknown]
  - Depressed level of consciousness [Unknown]
  - Hypocalcaemia [Unknown]
  - Sinus tachycardia [Unknown]
  - Decreased appetite [Unknown]
  - Hypoalbuminaemia [Unknown]
  - Hypokalaemia [Unknown]
